FAERS Safety Report 8788841 (Version 1)
Quarter: 2012Q4

REPORT INFORMATION
  Report Type: 
  Country: CH (occurrence: CH)
  Receive Date: 20120915
  Receipt Date: 20120915
  Transmission Date: 20130627
  Serious: Yes (Hospitalization)
  Sender: FDA-Public Use
  Company Number: CH-ABBOTT-12P-151-0979500-00

PATIENT
  Age: 58 Year
  Sex: Female

DRUGS (3)
  1. VALPROIC ACID [Suspect]
     Indication: STATUS EPILEPTICUS
     Route: 065
  2. LEVETIRACETAM [Suspect]
     Indication: STATUS EPILEPTICUS
     Route: 065
  3. TOPIRAMATE [Suspect]
     Indication: STATUS EPILEPTICUS
     Route: 065

REACTIONS (2)
  - Acidosis hyperchloraemic [Unknown]
  - Drug ineffective [Unknown]
